FAERS Safety Report 10037532 (Version 1)
Quarter: 2014Q1

REPORT INFORMATION
  Report Type: Spontaneous
  Country: US (occurrence: None)
  Receive Date: 20140325
  Receipt Date: 20140325
  Transmission Date: 20141002
  Serious: Yes (Hospitalization)
  Sender: FDA-Public Use
  Company Number: None

PATIENT
  Age: 76 Year
  Sex: Female
  Weight: 74 kg

DRUGS (2)
  1. PACLITAXEL 150MG (TAXOL) [Suspect]
     Dates: start: 20110414
  2. CARBOPLATIN 322MG [Suspect]
     Dates: start: 20110414

REACTIONS (5)
  - Thrombocytopenia [None]
  - Oedema peripheral [None]
  - Hypoaesthesia [None]
  - Coronary artery occlusion [None]
  - Embolism [None]
